FAERS Safety Report 25604626 (Version 1)
Quarter: 2025Q3

REPORT INFORMATION
  Report Type: Spontaneous
  Country: US (occurrence: US)
  Receive Date: 20250725
  Receipt Date: 20250725
  Transmission Date: 20251021
  Serious: Yes (Hospitalization)
  Sender: SANOFI AVENTIS
  Company Number: US-SA-2025SA212647

PATIENT
  Age: 61 Year
  Sex: Female

DRUGS (9)
  1. DUPIXENT [Suspect]
     Active Substance: DUPILUMAB
     Indication: Migraine
     Route: 058
     Dates: start: 20250715, end: 20250715
  2. ALPRAZOLAM [Concomitant]
     Active Substance: ALPRAZOLAM
  3. DICLOFENAC [Concomitant]
     Active Substance: DICLOFENAC
  4. ESTRADIOL [Concomitant]
     Active Substance: ESTRADIOL
  5. GABAPENTIN [Concomitant]
     Active Substance: GABAPENTIN
  6. METAXALONE [Concomitant]
     Active Substance: METAXALONE
  7. MONTELUKAST SODIUM [Concomitant]
     Active Substance: MONTELUKAST SODIUM
  8. NURTEC ODT [Concomitant]
     Active Substance: RIMEGEPANT SULFATE
  9. NYSTATIN [Concomitant]
     Active Substance: NYSTATIN

REACTIONS (3)
  - Fall [Unknown]
  - Concussion [Unknown]
  - Product use in unapproved indication [Unknown]

NARRATIVE: CASE EVENT DATE: 20250101
